FAERS Safety Report 23307368 (Version 1)
Quarter: 2023Q4

REPORT INFORMATION
  Report Type: Report from Study
  Country: US (occurrence: US)
  Receive Date: 20231218
  Receipt Date: 20231218
  Transmission Date: 20240109
  Serious: No
  Sender: FDA-Public Use
  Company Number: US-ALXN-A202308662

PATIENT
  Age: 50 Year
  Sex: Female

DRUGS (1)
  1. STRENSIQ [Suspect]
     Active Substance: ASFOTASE ALFA
     Indication: Hypophosphatasia
     Dosage: 80 MG, TIW
     Route: 058
     Dates: start: 20230728

REACTIONS (14)
  - Renal cyst [Unknown]
  - Antimitochondrial antibody positive [Unknown]
  - Pain in extremity [Unknown]
  - Pain in jaw [Unknown]
  - Malaise [Unknown]
  - Arthralgia [Unknown]
  - Headache [Unknown]
  - Abdominal pain upper [Unknown]
  - Gait disturbance [Unknown]
  - Nausea [Unknown]
  - Fatigue [Not Recovered/Not Resolved]
  - Asthenia [Unknown]
  - Injection site pain [Unknown]
  - Injection site erythema [Recovered/Resolved]

NARRATIVE: CASE EVENT DATE: 20230728
